FAERS Safety Report 22653119 (Version 1)
Quarter: 2023Q2

REPORT INFORMATION
  Report Type: Spontaneous
  Country: NL (occurrence: NL)
  Receive Date: 20230629
  Receipt Date: 20230629
  Transmission Date: 20230721
  Serious: Yes (Hospitalization)
  Sender: FDA-Public Use
  Company Number: None

PATIENT
  Sex: Male
  Weight: 95.6 kg

DRUGS (3)
  1. OXALIPLATIN [Suspect]
     Active Substance: OXALIPLATIN
     Indication: Rectal cancer
     Dosage: 1X 285MG IN 2 HOURS ON DAY 1, INFOPL CONC, BRAND NAME NOT SPECIFIED
     Route: 065
     Dates: start: 20230426
  2. CAPECITABINE [Suspect]
     Active Substance: CAPECITABINE
     Indication: Rectal cancer
     Dosage: 300 MILLIGRAM DAILY; 2X A DAY 1 PIECE (EVERY 12 HOURS), TABLET FO, BRAND NAME NOT SPECIFIED
     Route: 065
     Dates: start: 20230426, end: 20230504
  3. BEVACIZUMAB [Suspect]
     Active Substance: BEVACIZUMAB
     Indication: Rectal cancer
     Dosage: 800MG ON DAY 1 ONLY, INFOPL CONC, BRAND NAME NOT SPECIFIED
     Route: 065
     Dates: start: 20230426

REACTIONS (2)
  - Enteritis [Recovering/Resolving]
  - Electrolyte imbalance [Recovering/Resolving]
